FAERS Safety Report 5762388-9 (Version None)
Quarter: 2008Q2

REPORT INFORMATION
  Report Type: 
  Country: None (occurrence: None)
  Receive Date: 20080609
  Receipt Date: 20080529
  Transmission Date: 20081010
  Serious: Yes (Other)
  Sender: FDA-Public Use
  Company Number: US-WYE-H04282608

PATIENT
  Age: 17 Year
  Sex: Male

DRUGS (1)
  1. ADVIL [Suspect]
     Indication: MYALGIA
     Dosage: 2 TABLETS, FREQUENCY UNKNOWN
     Route: 048
     Dates: end: 20080528

REACTIONS (2)
  - CONVULSION [None]
  - DYSARTHRIA [None]
